FAERS Safety Report 24537678 (Version 4)
Quarter: 2024Q4

REPORT INFORMATION
  Report Type: Report from Study
  Country: US (occurrence: US)
  Receive Date: 20241023
  Receipt Date: 20241217
  Transmission Date: 20250115
  Serious: Yes (Hospitalization, Other)
  Sender: UCB
  Company Number: US-UCBSA-2024053422

PATIENT
  Sex: Male
  Weight: 27.3 kg

DRUGS (24)
  1. FINTEPLA [Suspect]
     Active Substance: FENFLURAMINE
     Indication: Severe myoclonic epilepsy of infancy
     Dosage: 3.5 MILLILITER, 2X/DAY (BID)
  2. FINTEPLA [Suspect]
     Active Substance: FENFLURAMINE
     Dosage: 2 MILLILITER, 2X/DAY (BID)
     Route: 048
     Dates: start: 20240830
  3. FINTEPLA [Suspect]
     Active Substance: FENFLURAMINE
     Dosage: 4.4 MILLIGRAM, 2X/DAY (BID)
     Dates: start: 20241015
  4. KEPPRA [Suspect]
     Active Substance: LEVETIRACETAM
     Indication: Seizure
     Dosage: 1000 MILLIGRAM, 2X/DAY (BID)
     Route: 048
     Dates: start: 20241015
  5. KLONOPIN [Concomitant]
     Active Substance: CLONAZEPAM
     Indication: Seizure
     Dosage: TAKE 10 ML (1MG TOTAL BY MOUTH 2 TIMES A DAY
     Route: 048
  6. KLONOPIN [Concomitant]
     Active Substance: CLONAZEPAM
     Dosage: 0.5 MILLIGRAM
  7. ONFI [Concomitant]
     Active Substance: CLOBAZAM
     Indication: Seizure
     Dosage: TAKE 8 ML (20 MG TOTAL) BY MOUTH 2 TIMES A DAY
     Route: 048
     Dates: start: 20241015
  8. ONFI [Concomitant]
     Active Substance: CLOBAZAM
     Dosage: 2.5 MILLIGRAM
  9. DEPAKOTE ER [Concomitant]
     Active Substance: DIVALPROEX SODIUM
     Indication: Seizure
     Dosage: 125 MILLIGRAM, 2X/DAY (BID)
     Route: 048
     Dates: start: 20241015
  10. VALTOCO [Concomitant]
     Active Substance: DIAZEPAM
     Indication: Seizure
  11. EPIDIOLEX [Concomitant]
     Active Substance: CANNABIDIOL
     Indication: Product used for unknown indication
  12. LACTULOSE [Concomitant]
     Active Substance: LACTULOSE
     Indication: Product used for unknown indication
  13. LEVOCARNITINE [Concomitant]
     Active Substance: LEVOCARNITINE
     Indication: Product used for unknown indication
  14. THIAMINE [Concomitant]
     Active Substance: THIAMINE
     Indication: Product used for unknown indication
  15. SENNA+ [Concomitant]
     Indication: Product used for unknown indication
  16. MIRALAX [Concomitant]
     Active Substance: POLYETHYLENE GLYCOL 3350
     Indication: Constipation
     Dosage: MIX 1 PACKET IN WATER AND TAKE BY MOUTH TWICE A DAY FOR CONSTIPATION
     Route: 048
  17. FERROUS SULFATE [Concomitant]
     Active Substance: FERROUS SULFATE
     Indication: Product used for unknown indication
     Dosage: 15 MILLIGRAM
  18. LANSOPRAZOLE [Concomitant]
     Active Substance: LANSOPRAZOLE
     Indication: Reflux gastritis
     Dosage: TAKE 5 ML (15 MG OF TOTAL) BY MOUTH 2 TIMES DAILY
     Route: 048
  19. PERIACTIN [Concomitant]
     Active Substance: CYPROHEPTADINE HYDROCHLORIDE
     Indication: Increased appetite
  20. ACETAMINOPHEN [Concomitant]
     Active Substance: ACETAMINOPHEN
     Indication: Pain
     Dosage: 160 MG/5ML
     Route: 048
  21. PYRIDOXINE [Concomitant]
     Active Substance: PYRIDOXINE
     Dosage: 50 MILLIGRAM
  22. VITAMINS [Concomitant]
     Active Substance: VITAMINS
     Indication: Product used for unknown indication
     Dosage: 1 MILLILITER, ONCE DAILY (QD)
     Route: 048
  23. CHOLECALCIFEROL [Concomitant]
     Active Substance: CHOLECALCIFEROL
     Indication: Product used for unknown indication
     Dosage: 25 MILLIGRAM
     Route: 048
  24. VALPROIC ACID [Concomitant]
     Active Substance: VALPROIC ACID
     Indication: Product used for unknown indication
     Dosage: 2.5 MILLILITER, 3X/DAY (TID)

REACTIONS (22)
  - Cardiac disorder [Not Recovered/Not Resolved]
  - Decreased appetite [Not Recovered/Not Resolved]
  - Weight decreased [Not Recovered/Not Resolved]
  - Ill-defined disorder [Not Recovered/Not Resolved]
  - Seizure [Not Recovered/Not Resolved]
  - Vomiting [Not Recovered/Not Resolved]
  - Failure to thrive [Recovered/Resolved]
  - Seizure cluster [Unknown]
  - Generalised tonic-clonic seizure [Unknown]
  - Osteonecrosis [Unknown]
  - Malnutrition [Unknown]
  - Intestinal obstruction [Unknown]
  - Weight gain poor [Not Recovered/Not Resolved]
  - Mental status changes [Unknown]
  - Hyperammonaemia [Unknown]
  - Hypotension [Unknown]
  - Somnolence [Unknown]
  - Rhinovirus infection [Unknown]
  - Constipation [Unknown]
  - Hypovitaminosis [Not Recovered/Not Resolved]
  - Iron deficiency [Not Recovered/Not Resolved]
  - Gastrooesophageal reflux disease [Not Recovered/Not Resolved]

NARRATIVE: CASE EVENT DATE: 20240101
